FAERS Safety Report 6617600-0 (Version None)
Quarter: 2010Q1

REPORT INFORMATION
  Report Type: 
  Country: None (occurrence: None)
  Receive Date: 20100308
  Receipt Date: 20100226
  Transmission Date: 20100710
  Serious: Yes (Other)
  Sender: FDA-Public Use
  Company Number: BR-ASTRAZENECA-2010SE08704

PATIENT
  Age: 44 Year
  Sex: Female

DRUGS (3)
  1. ATACAND HCT [Suspect]
     Indication: HYPERTENSION
     Dosage: 8/12.5 MG DAILY
     Route: 048
     Dates: start: 20070701
  2. ATACAND HCT [Suspect]
     Dosage: 8/12.5 MG TWICE DAILY
     Route: 048
  3. SOTALOL HCL [Concomitant]
     Indication: ARRHYTHMIA
     Route: 048
     Dates: start: 20000101, end: 20090727

REACTIONS (3)
  - ARRHYTHMIA [None]
  - BLOOD PRESSURE FLUCTUATION [None]
  - INAPPROPRIATE SCHEDULE OF DRUG ADMINISTRATION [None]
